FAERS Safety Report 11412139 (Version 1)
Quarter: 2015Q3

REPORT INFORMATION
  Report Type: Spontaneous
  Country: US (occurrence: US)
  Receive Date: 20150821
  Receipt Date: 20150821
  Transmission Date: 20151125
  Serious: No
  Sender: FDA-Public Use
  Company Number: US-ELI_LILLY_AND_COMPANY-US201202006055

PATIENT
  Sex: Female
  Weight: 89.8 kg

DRUGS (19)
  1. DEPAKOTE [Concomitant]
     Active Substance: DIVALPROEX SODIUM
     Indication: SEIZURE
     Dosage: 500 MG, BID
  2. REMERON [Concomitant]
     Active Substance: MIRTAZAPINE
     Indication: INSOMNIA
     Dosage: 30 MG, QD
  3. METHOCARBAMOL. [Concomitant]
     Active Substance: METHOCARBAMOL
     Indication: MUSCLE SPASMS
     Dosage: 750 MG, PRN
  4. GENERLAC [Concomitant]
     Active Substance: LACTULOSE
     Indication: CROHN^S DISEASE
     Dosage: 30 MG, PRN
  5. SIMVASTATIN. [Concomitant]
     Active Substance: SIMVASTATIN
     Indication: BLOOD CHOLESTEROL INCREASED
     Dosage: 40 MG, QD
  6. ASPIRIN. [Concomitant]
     Active Substance: ASPIRIN
     Indication: CHEST PAIN
     Dosage: 81 MG, PRN
  7. POTASSIUM CHLORIDE. [Concomitant]
     Active Substance: POTASSIUM CHLORIDE
     Indication: MINERAL SUPPLEMENTATION
     Dosage: 8 MEQ, QD
  8. LANTUS [Concomitant]
     Active Substance: INSULIN GLARGINE
     Indication: DIABETES MELLITUS
     Dosage: 80 U, EACH MORNING
  9. ATENOLOL. [Concomitant]
     Active Substance: ATENOLOL
     Indication: HYPERTENSION
     Dosage: 25 MG, QD
  10. NORVASC [Concomitant]
     Active Substance: AMLODIPINE BESYLATE
     Indication: PRODUCT USED FOR UNKNOWN INDICATION
  11. DILANTIN [Concomitant]
     Active Substance: PHENYTOIN
     Indication: SEIZURE
     Dosage: 300 MG, BID
  12. TYLENOL WITH CODEINE [Concomitant]
     Active Substance: ACETAMINOPHEN\CODEINE PHOSPHATE
     Indication: MIGRAINE
  13. ATIVAN [Concomitant]
     Active Substance: LORAZEPAM
     Indication: NERVOUSNESS
     Dosage: 1 MG, TID
  14. LANTUS [Concomitant]
     Active Substance: INSULIN GLARGINE
     Dosage: 90 U, EACH EVENING
  15. ZANTAC [Concomitant]
     Active Substance: RANITIDINE HYDROCHLORIDE
     Indication: GASTROOESOPHAGEAL REFLUX DISEASE
     Dosage: 300 MG, TID
  16. NITROSTAT [Concomitant]
     Active Substance: NITROGLYCERIN
     Indication: CHEST PAIN
     Dosage: 0.4 MG, PRN
  17. HUMULIN R [Suspect]
     Active Substance: INSULIN HUMAN
     Indication: DIABETES MELLITUS
     Dosage: 24 U, TID
  18. FUROSEMIDE. [Concomitant]
     Active Substance: FUROSEMIDE
     Indication: DIURETIC THERAPY
     Dosage: 40 MG, BID
  19. ISOSORBIDE MONONITRATE. [Concomitant]
     Active Substance: ISOSORBIDE MONONITRATE
     Indication: CARDIAC DISORDER
     Dosage: 30 MG, TID

REACTIONS (3)
  - Chronic obstructive pulmonary disease [Unknown]
  - Emphysema [Unknown]
  - Amnesia [Recovering/Resolving]
